FAERS Safety Report 6295824-2 (Version None)
Quarter: 2009Q3

REPORT INFORMATION
  Report Type: 
  Country: None (occurrence: None)
  Receive Date: 20090804
  Receipt Date: 20090723
  Transmission Date: 20100115
  Serious: Yes (Hospitalization)
  Sender: FDA-Public Use
  Company Number: DE-PFIZER INC-2009246329

PATIENT
  Age: 50 Year

DRUGS (4)
  1. CLINDAMYCIN PHOSPHATE [Suspect]
     Indication: FURUNCLE
  2. RISEDRONATE SODIUM [Interacting]
     Indication: OSTEOPOROSIS
  3. VITAMIN D [Concomitant]
     Indication: OSTEOPOROSIS
  4. CALCIUM [Concomitant]
     Indication: OSTEOPOROSIS

REACTIONS (2)
  - DRUG INTERACTION [None]
  - OESOPHAGITIS [None]
